FAERS Safety Report 18450423 (Version 2)
Quarter: 2020Q4

REPORT INFORMATION
  Report Type: Report from Study
  Country: CA (occurrence: CA)
  Receive Date: 20201030
  Receipt Date: 20201203
  Transmission Date: 20210114
  Serious: Yes (Other)
  Sender: FDA-Public Use
  Company Number: CA-JNJFOC-20201026025

PATIENT
  Sex: Male

DRUGS (2)
  1. STELARA [Suspect]
     Active Substance: USTEKINUMAB
     Route: 058
  2. STELARA [Suspect]
     Active Substance: USTEKINUMAB
     Indication: COLITIS ULCERATIVE
     Route: 058

REACTIONS (13)
  - Haematochezia [Unknown]
  - Drug ineffective [Unknown]
  - Diarrhoea [Unknown]
  - Headache [Not Recovered/Not Resolved]
  - Pain [Unknown]
  - Nausea [Unknown]
  - Photophobia [Not Recovered/Not Resolved]
  - Vertigo [Not Recovered/Not Resolved]
  - Proctitis [Unknown]
  - Dizziness [Not Recovered/Not Resolved]
  - Fatigue [Unknown]
  - Gastrointestinal inflammation [Unknown]
  - Palpitations [Not Recovered/Not Resolved]
